FAERS Safety Report 8282363-2 (Version None)
Quarter: 2012Q2

REPORT INFORMATION
  Report Type: 
  Country: None (occurrence: None)
  Receive Date: 20120413
  Receipt Date: 20120409
  Transmission Date: 20120825
  Serious: Yes (Other)
  Sender: FDA-Public Use
  Company Number: CA-PFIZER INC-2012091286

PATIENT
  Sex: Male

DRUGS (1)
  1. DEPO-MEDROL [Suspect]

REACTIONS (1)
  - POISONING [None]
